FAERS Safety Report 8336518-9 (Version None)
Quarter: 2012Q2

REPORT INFORMATION
  Report Type: 
  Country: None (occurrence: None)
  Receive Date: 20120504
  Receipt Date: 20120423
  Transmission Date: 20120825
  Serious: Yes (Hospitalization)
  Sender: FDA-Public Use
  Company Number: ES-BRISTOL-MYERS SQUIBB COMPANY-16540916

PATIENT
  Age: 81 Year
  Sex: Female

DRUGS (1)
  1. METFORMIN HCL [Suspect]

REACTIONS (4)
  - LACTIC ACIDOSIS [None]
  - DIARRHOEA HAEMORRHAGIC [None]
  - VOMITING [None]
  - RENAL FAILURE CHRONIC [None]
